FAERS Safety Report 5612645-1 (Version None)
Quarter: 2008Q1

REPORT INFORMATION
  Report Type: 
  Country: None (occurrence: None)
  Receive Date: 20080201
  Receipt Date: 20080201
  Transmission Date: 20080703
  Serious: Yes (Hospitalization)
  Sender: FDA-Public Use
  Company Number: None

PATIENT
  Age: 76 Year
  Sex: Male
  Weight: 74.07 kg

DRUGS (2)
  1. WARFARIN SODIUM [Suspect]
     Indication: ATRIAL THROMBOSIS
     Dosage: 5MG PM PO
     Route: 048
     Dates: start: 20071222, end: 20071228
  2. ENOXAPARIN SODIUM [Suspect]
     Indication: ATRIAL THROMBOSIS
     Dosage: 60MG BID SQ
     Route: 058
     Dates: start: 20071220, end: 20071228

REACTIONS (1)
  - HAEMATURIA [None]
